FAERS Safety Report 4457772-X (Version None)
Quarter: 2004Q3

REPORT INFORMATION
  Report Type: 
  Country: None (occurrence: None)
  Receive Date: 20040922
  Receipt Date: 20040909
  Transmission Date: 20050211
  Serious: Yes (Death, Life-Threatening)
  Sender: FDA-Public Use
  Company Number: 2004041303

PATIENT
  Age: 71 Year
  Sex: Male

DRUGS (10)
  1. VIAGRA [Suspect]
     Indication: ERECTILE DYSFUNCTION
     Dosage: AS NECESSARY, ORAL
     Route: 048
     Dates: start: 20030701
  2. IRBESARTAN (IRBESARTAN) [Concomitant]
  3. LERCANIDIPINE [Concomitant]
  4. PRAVASTATIN [Concomitant]
  5. PIRACETAM (PIRACETAM) [Concomitant]
  6. GINKGO BILOBA (GINKGO BILOBA) [Concomitant]
  7. TRAMADOL HCL [Concomitant]
  8. TETRAZEPAM (TETRAZEPAM) [Concomitant]
  9. HYDROCHLOROTHIAZIDE [Concomitant]
  10. TRAMADOL HCL [Concomitant]

REACTIONS (4)
  - ABDOMINAL PAIN [None]
  - DEPRESSED LEVEL OF CONSCIOUSNESS [None]
  - DIARRHOEA [None]
  - INTESTINAL INFARCTION [None]
